FAERS Safety Report 10947917 (Version 1)
Quarter: 2015Q1

REPORT INFORMATION
  Report Type: Spontaneous
  Country: US (occurrence: US)
  Receive Date: 20150324
  Receipt Date: 20150324
  Transmission Date: 20150721
  Serious: Yes (Other)
  Sender: FDA-Public Use
  Company Number: US-JNJFOC-20150308271

PATIENT
  Age: 61 Year
  Sex: Female

DRUGS (7)
  1. ACETAMINOPHEN. [Suspect]
     Active Substance: ACETAMINOPHEN
     Indication: HYPERHIDROSIS
     Route: 065
  2. ACETAMINOPHEN. [Suspect]
     Active Substance: ACETAMINOPHEN
     Indication: PYREXIA
     Route: 065
  3. MEPERIDINE [Suspect]
     Active Substance: MEPERIDINE
     Indication: PYREXIA
     Route: 065
  4. IPILIMUMAB [Concomitant]
     Active Substance: IPILIMUMAB
     Indication: MALIGNANT MELANOMA
     Dosage: EVERY 3 WEEKS.
     Route: 065
  5. NON STEROIDAL ANTI-INFLAMMATORY DRUGS [Suspect]
     Active Substance: UNSPECIFIED INGREDIENT
     Indication: HYPERHIDROSIS
     Route: 065
  6. MEPERIDINE [Suspect]
     Active Substance: MEPERIDINE
     Indication: HYPERHIDROSIS
     Route: 065
  7. NON STEROIDAL ANTI-INFLAMMATORY DRUGS [Suspect]
     Active Substance: UNSPECIFIED INGREDIENT
     Indication: PYREXIA
     Route: 065

REACTIONS (1)
  - Drug ineffective [Unknown]
